FAERS Safety Report 9696026 (Version 2)
Quarter: 2013Q4

REPORT INFORMATION
  Report Type: Report from Study
  Country: US (occurrence: US)
  Receive Date: 20131119
  Receipt Date: 20131125
  Transmission Date: 20140711
  Serious: Yes (Hospitalization)
  Sender: FDA-Public Use
  Company Number: US-US-EMD SERONO, INC.-7250065

PATIENT
  Age: 66 Year
  Sex: Female

DRUGS (2)
  1. REBIF [Suspect]
     Indication: RELAPSING-REMITTING MULTIPLE SCLEROSIS
     Dates: start: 2003
  2. REBIF [Suspect]
     Dates: start: 2013

REACTIONS (7)
  - Open fracture [Recovering/Resolving]
  - Hypokinesia [Unknown]
  - Gastroenteritis norovirus [Recovered/Resolved]
  - Skin fissures [Recovering/Resolving]
  - White blood cell count abnormal [Recovering/Resolving]
  - Influenza like illness [Not Recovered/Not Resolved]
  - Injection site reaction [Not Recovered/Not Resolved]
